FAERS Safety Report 6275055-2 (Version None)
Quarter: 2009Q3

REPORT INFORMATION
  Report Type: 
  Country: None (occurrence: None)
  Receive Date: 20090721
  Receipt Date: 20090707
  Transmission Date: 20100115
  Serious: Yes (Other)
  Sender: FDA-Public Use
  Company Number: US-ROCHE-636278

PATIENT
  Sex: Male

DRUGS (3)
  1. PEG-INTERFERON A-2A (RO 25-8310) [Suspect]
     Indication: HEPATITIS C
     Dosage: FORM: PREFILLED SYRINGE (PFS), THE PATIENT WAS IN WEEK 24 OF TREATMENT.
     Route: 065
     Dates: start: 20090127
  2. RIBAVIRIN [Suspect]
     Indication: HEPATITIS C
     Dosage: DIVIDED DOSES
     Route: 065
     Dates: start: 20090127
  3. RIBAVIRIN [Suspect]
     Dosage: THE PATIENT WAS IN WEEK 24 OF TREATMENT.
     Route: 065
     Dates: start: 20090623

REACTIONS (2)
  - FATIGUE [None]
  - HAEMOGLOBIN DECREASED [None]
